FAERS Safety Report 10231173 (Version 1)
Quarter: 2014Q2

REPORT INFORMATION
  Report Type: Spontaneous
  Country: CN (occurrence: CN)
  Receive Date: 20140611
  Receipt Date: 20140611
  Transmission Date: 20141212
  Serious: Yes (Hospitalization)
  Sender: FDA-Public Use
  Company Number: CN-ELI_LILLY_AND_COMPANY-CN201406003704

PATIENT
  Age: 1 Year
  Sex: Male
  Weight: 10.5 kg

DRUGS (2)
  1. CEFACLOR [Suspect]
     Indication: PYREXIA
     Dosage: 1 DF, BID
     Route: 048
     Dates: start: 20130715, end: 20130716
  2. IBUPROFEN [Suspect]
     Indication: PYREXIA
     Dosage: 4 ML, QID
     Route: 048
     Dates: start: 20130715, end: 20130716

REACTIONS (3)
  - Nausea [Recovered/Resolved]
  - Vomiting [Recovered/Resolved]
  - Diarrhoea [Recovered/Resolved]
